FAERS Safety Report 13844549 (Version 1)
Quarter: 2017Q3

REPORT INFORMATION
  Report Type: Report from Study
  Country: None (occurrence: US)
  Receive Date: 20170808
  Receipt Date: 20170808
  Transmission Date: 20171127
  Serious: Yes (Other)
  Sender: FDA-Public Use
  Company Number: US-ABBVIE-17K-163-2061173-00

PATIENT
  Sex: Female

DRUGS (1)
  1. HUMIRA [Suspect]
     Active Substance: ADALIMUMAB
     Indication: ANKYLOSING SPONDYLITIS
     Route: 058
     Dates: end: 201605

REACTIONS (8)
  - Urinary control neurostimulator implantation [Unknown]
  - Ligament sprain [Unknown]
  - Device deployment issue [Unknown]
  - Staphylococcal infection [Recovered/Resolved]
  - Impaired healing [Not Recovered/Not Resolved]
  - Contusion [Unknown]
  - Body temperature increased [Not Recovered/Not Resolved]
  - Staphylococcal infection [Recovered/Resolved]

NARRATIVE: CASE EVENT DATE: 2016
